FAERS Safety Report 7810036 (Version 2)
Quarter: 2014Q1

REPORT INFORMATION
  Report Type: Spontaneous
  Country: US (occurrence: US)
  Receive Date: 20110213
  Receipt Date: 20140220
  Transmission Date: 20141002
  Serious: Yes (Disabling, Other)
  Sender: FDA-Public Use
  Company Number: US-US-EMD SERONO, INC.-7040658

PATIENT
  Sex: Female
  Weight: 91 kg

DRUGS (2)
  1. REBIF [Suspect]
     Indication: MULTIPLE SCLEROSIS
     Route: 058
     Dates: start: 20040507
  2. REBIF [Suspect]
     Route: 058
     Dates: start: 201101

REACTIONS (9)
  - Eye haemorrhage [Not Recovered/Not Resolved]
  - Blindness unilateral [Not Recovered/Not Resolved]
  - Swelling face [Unknown]
  - Infection [Not Recovered/Not Resolved]
  - Paranasal sinus hypersecretion [Recovered/Resolved]
  - Weight decreased [Unknown]
  - Disorientation [Recovered/Resolved]
  - Malaise [Unknown]
  - Muscle spasms [Recovering/Resolving]
